FAERS Safety Report 4636568-X (Version None)
Quarter: 2005Q2

REPORT INFORMATION
  Report Type: 
  Country: None (occurrence: None)
  Receive Date: 20050415
  Receipt Date: 20030501
  Transmission Date: 20051028
  Serious: Yes (Death)
  Sender: FDA-Public Use
  Company Number: PHFR2003GB05120

PATIENT

DRUGS (1)
  1. NEORAL [Suspect]

REACTIONS (1)
  - HYPERTENSION [None]
